FAERS Safety Report 25588346 (Version 1)
Quarter: 2025Q3

REPORT INFORMATION
  Report Type: Spontaneous
  Country: US (occurrence: US)
  Receive Date: 20250722
  Receipt Date: 20250722
  Transmission Date: 20251021
  Serious: No
  Sender: ENDO
  Company Number: US-ENDO PHARMACEUTICALS INC-2024-001810

PATIENT
  Sex: Male

DRUGS (3)
  1. EDEX [Suspect]
     Active Substance: ALPROSTADIL
     Indication: Product used for unknown indication
     Route: 051
     Dates: start: 202408
  2. EDEX [Suspect]
     Active Substance: ALPROSTADIL
     Route: 051
     Dates: start: 2024
  3. EDEX [Suspect]
     Active Substance: ALPROSTADIL
     Route: 051
     Dates: start: 202312

REACTIONS (4)
  - Drug ineffective [Unknown]
  - Incorrect dose administered [Not Recovered/Not Resolved]
  - Device issue [None]
  - Device delivery system issue [None]

NARRATIVE: CASE EVENT DATE: 20240101
